FAERS Safety Report 4971207-X (Version None)
Quarter: 2006Q1

REPORT INFORMATION
  Report Type: 
  Country: None (occurrence: None)
  Receive Date: 20060216
  Receipt Date: 20050307
  Transmission Date: 20060701
  Serious: Yes (Hospitalization)
  Sender: FDA-Public Use
  Company Number: 200503IM000061

PATIENT
  Age: 59 Year
  Sex: Female
  Weight: 100.0635 kg

DRUGS (10)
  1. BLINDED THERAPY (INTERFERON GAMMA - 1B) [Suspect]
     Indication: IDIOPATHIC PULMONARY FIBROSIS
     Dosage: 200 UG, TIW, SUBCUTANEOUS
     Route: 058
     Dates: start: 20041111, end: 20050304
  2. BLINDED THERAPY (INTERFERON GAMMA - 1B) [Suspect]
     Indication: IDIOPATHIC PULMONARY FIBROSIS
     Dosage: 200 UG, TIW, SUBCUTANEOUS
     Route: 058
     Dates: start: 20050309
  3. TYLENOL W/ CODEINE [Concomitant]
  4. GLUCOSAMINE CHONDROITIN [Concomitant]
  5. ADVIL [Concomitant]
  6. M.V.I. [Concomitant]
  7. FIBERCON [Concomitant]
  8. TUMS [Concomitant]
  9. PRILOSEC [Concomitant]
  10. LISINOPRIL [Concomitant]

REACTIONS (1)
  - ACUTE RESPIRATORY FAILURE [None]
